FAERS Safety Report 10145979 (Version 1)
Quarter: 2014Q2

REPORT INFORMATION
  Report Type: Report from Study
  Country: US (occurrence: US)
  Receive Date: 20140501
  Receipt Date: 20140501
  Transmission Date: 20141212
  Serious: Yes (Other)
  Sender: FDA-Public Use
  Company Number: PHEH2014US008587

PATIENT
  Sex: Female

DRUGS (2)
  1. DIOVAN [Suspect]
     Dosage: 40 MG, UNK
     Route: 048
  2. DIOVAN [Suspect]
     Dosage: 80 MG, UNK
     Route: 048

REACTIONS (3)
  - Pneumonia [Unknown]
  - Influenza [Unknown]
  - Sinusitis [Unknown]
